FAERS Safety Report 8485651-X (Version None)
Quarter: 2012Q3

REPORT INFORMATION
  Report Type: 
  Country: None (occurrence: None)
  Receive Date: 20120703
  Receipt Date: 20120626
  Transmission Date: 20120928
  Serious: Yes (Other)
  Sender: FDA-Public Use
  Company Number: DE-B.I. PHARMACEUTICALS,INC./RIDGEFIELD-2012-DE-01540DE

PATIENT
  Age: 74 Year
  Sex: Male

DRUGS (4)
  1. AT2 ANTAGONISTS [Concomitant]
  2. DIURETICS [Concomitant]
  3. PRADAXA [Suspect]
     Indication: ATRIAL FIBRILLATION
     Dosage: 220 MG
  4. BETA BLOCKING AGENTS [Concomitant]

REACTIONS (2)
  - RENAL FAILURE [None]
  - BLOOD BILIRUBIN INCREASED [None]
